FAERS Safety Report 9329942 (Version 1)
Quarter: 2013Q2

REPORT INFORMATION
  Report Type: Spontaneous
  Country: US (occurrence: US)
  Receive Date: 20130604
  Receipt Date: 20130604
  Transmission Date: 20140414
  Serious: Yes (Other)
  Sender: FDA-Public Use
  Company Number: US-SANOFI-AVENTIS-2012SA053101

PATIENT
  Age: 89 Year
  Sex: Male

DRUGS (2)
  1. LANTUS [Suspect]
     Route: 058
  2. NOVOLOG [Suspect]
     Dosage: DOSE:9 UNIT(S)
     Route: 058

REACTIONS (2)
  - Diabetic foot infection [Unknown]
  - Blood glucose increased [Unknown]
